FAERS Safety Report 4544677-9 (Version None)
Quarter: 2005Q1

REPORT INFORMATION
  Report Type: 
  Country: None (occurrence: None)
  Receive Date: 20050103
  Receipt Date: 20050103
  Transmission Date: 20050727
  Serious: Yes (Life-Threatening)
  Sender: FDA-Public Use
  Company Number: None

PATIENT
  Sex: Male
  Weight: 73.9363 kg

DRUGS (6)
  1. VIOXX [Suspect]
     Indication: ARTHRITIS
     Dosage: 25 MG ONE DAILY ORAL
     Route: 048
     Dates: start: 20020215, end: 20031110
  2. VIOXX [Suspect]
     Indication: INFLAMMATION
     Dosage: 25 MG ONE DAILY ORAL
     Route: 048
     Dates: start: 20020215, end: 20031110
  3. VIOXX [Suspect]
     Indication: NECK PAIN
     Dosage: 25 MG ONE DAILY ORAL
     Route: 048
     Dates: start: 20020215, end: 20031110
  4. CELEBREX [Suspect]
     Indication: ARTHRITIS
     Dosage: 25 MG ONE DAILY ORAL
     Route: 048
     Dates: start: 20010608, end: 20011020
  5. CELEBREX [Suspect]
     Indication: INFLAMMATION
     Dosage: 25 MG ONE DAILY ORAL
     Route: 048
     Dates: start: 20010608, end: 20011020
  6. CELEBREX [Suspect]
     Indication: NECK PAIN
     Dosage: 25 MG ONE DAILY ORAL
     Route: 048
     Dates: start: 20010608, end: 20011020

REACTIONS (7)
  - ARTHRALGIA [None]
  - CHEST PAIN [None]
  - CONDITION AGGRAVATED [None]
  - MEDICATION ERROR [None]
  - PAIN IN EXTREMITY [None]
  - PHARMACEUTICAL PRODUCT COMPLAINT [None]
  - RENAL DISORDER [None]
